FAERS Safety Report 20668208 (Version 2)
Quarter: 2022Q2

REPORT INFORMATION
  Report Type: Spontaneous
  Country: US (occurrence: US)
  Receive Date: 20220404
  Receipt Date: 20220404
  Transmission Date: 20220721
  Serious: No
  Sender: FDA-Public Use
  Company Number: US-PFIZER INC-202101102033

PATIENT
  Age: 57 Year
  Sex: Female

DRUGS (8)
  1. XELJANZ [Suspect]
     Active Substance: TOFACITINIB CITRATE
     Indication: Rheumatoid arthritis
     Dosage: 5 MG, 2X/DAY
     Route: 048
     Dates: start: 2015
  2. CRANBERRY [Concomitant]
     Active Substance: CRANBERRY
     Dosage: 200 MG
  3. KRILL OIL [Concomitant]
     Active Substance: DIETARY SUPPLEMENT\KRILL OIL
     Dosage: UNK
  4. GINGER [Concomitant]
     Active Substance: GINGER
     Dosage: 250 MG
  5. BENADRYL [Concomitant]
     Active Substance: DIPHENHYDRAMINE HYDROCHLORIDE
     Dosage: 25 MG
  6. LORAZEPAM [Concomitant]
     Active Substance: LORAZEPAM
     Dosage: 0.5 MG
  7. VITAMINS [Concomitant]
     Active Substance: VITAMINS
  8. VITAMIN D-400 [Concomitant]
     Dosage: 10 UG

REACTIONS (1)
  - Blood cholesterol increased [Unknown]
